FAERS Safety Report 7785436-3 (Version None)
Quarter: 2011Q3

REPORT INFORMATION
  Report Type: 
  Country: None (occurrence: None)
  Receive Date: 20110929
  Receipt Date: 20110919
  Transmission Date: 20111222
  Serious: Yes (Other)
  Sender: FDA-Public Use
  Company Number: BE-BAYER-2011-087276

PATIENT
  Age: 34 Year
  Sex: Female

DRUGS (1)
  1. MIRENA [Suspect]
     Dosage: 20 MCG/24HR, CONT
     Route: 015
     Dates: start: 20090907, end: 20110808

REACTIONS (7)
  - GASTROINTESTINAL DISORDER [None]
  - ABDOMINAL PAIN [None]
  - RUPTURED ECTOPIC PREGNANCY [None]
  - CYST [None]
  - UNEVALUABLE EVENT [None]
  - ECTOPIC PREGNANCY [None]
  - PERITONEAL HAEMORRHAGE [None]
